FAERS Safety Report 6747541-X (Version None)
Quarter: 2010Q2

REPORT INFORMATION
  Report Type: 
  Country: None (occurrence: None)
  Receive Date: 20100528
  Receipt Date: 20100519
  Transmission Date: 20101027
  Serious: Yes (Life-Threatening)
  Sender: FDA-Public Use
  Company Number: GXKR2010RU05743

PATIENT
  Age: 48 Year
  Sex: Female
  Weight: 76 kg

DRUGS (6)
  1. EDICIN (NGX) [Suspect]
     Indication: PARAMETRITIS
     Dosage: 2 G, UNK
     Route: 042
     Dates: start: 20100514, end: 20100514
  2. DORIPENEM [Concomitant]
     Dosage: UNK
     Route: 042
     Dates: start: 20100507, end: 20100514
  3. CALCIUM CHLORIDE [Concomitant]
     Dosage: UNK
     Route: 042
     Dates: start: 20100323, end: 20100329
  4. ENOXAPARIN SODIUM [Concomitant]
     Dosage: UNK
     Route: 058
     Dates: start: 20100504, end: 20100507
  5. CEFOPERAZONE SODIUM [Concomitant]
     Dosage: UNK
     Route: 065
     Dates: start: 20100504, end: 20100507
  6. METRONIDAZOLE [Concomitant]
     Route: 065

REACTIONS (5)
  - BLOOD PRESSURE DECREASED [None]
  - CHILLS [None]
  - DYSPNOEA [None]
  - FAECAL INCONTINENCE [None]
  - URINARY INCONTINENCE [None]
